FAERS Safety Report 16438711 (Version 1)
Quarter: 2019Q2

REPORT INFORMATION
  Report Type: Report from Study
  Country: MX (occurrence: MX)
  Receive Date: 20190617
  Receipt Date: 20190617
  Transmission Date: 20190711
  Serious: Yes (Hospitalization)
  Sender: FDA-Public Use
  Company Number: MX-UCBSA-2019010277

PATIENT
  Sex: Male
  Weight: 104 kg

DRUGS (10)
  1. COMPLEX B [Concomitant]
     Active Substance: CALCIUM PANTOTHENATE\CYANOCOBALAMIN\NIACINAMIDE\PYRIDOXINE HYDROCHLORIDE\RIBOFLAVIN\THIAMINE MONONITRATE
     Indication: SEIZURE
     Dosage: 1 DF, DAILY
     Route: 048
  2. NUBRENZA [Suspect]
     Active Substance: ROTIGOTINE
     Dosage: 4 MG, ONCE DAILY (QD)
     Route: 062
     Dates: start: 201902
  3. FOLIC ACID. [Concomitant]
     Active Substance: FOLIC ACID
     Indication: SEIZURE
     Dosage: 1 TABLET, 5 MG (DAILY)
     Route: 048
  4. NUBRENZA [Suspect]
     Active Substance: ROTIGOTINE
     Dosage: UNK
     Route: 062
  5. MADOPAR [Concomitant]
     Active Substance: BENSERAZIDE HYDROCHLORIDE\LEVODOPA
     Indication: SEIZURE
     Dosage: 0.5 TABLET BEFORE FOOD
     Route: 048
  6. NUBRENZA [Suspect]
     Active Substance: ROTIGOTINE
     Indication: PARKINSON^S DISEASE
     Dosage: 2 MG, ONCE DAILY (QD)
     Route: 062
     Dates: start: 201902
  7. VALPROATE [Concomitant]
     Active Substance: VALPROIC ACID
     Indication: SEIZURE
     Dosage: 1 DF, 3X/DAY (TID)
     Route: 048
  8. LEVETIRACETAM. [Concomitant]
     Active Substance: LEVETIRACETAM
     Indication: SEIZURE
     Dosage: 2 TABLETS IN MORNING AND AT NIGHT
     Route: 048
     Dates: start: 201808
  9. DABIGATRAN [Concomitant]
     Active Substance: DABIGATRAN
     Indication: SEIZURE
     Dosage: 1 DF, 2X/DAY (BID) (1 TABLET IN THE MORNING, ANDIN THE NIGHT)
     Route: 048
  10. CITALOPRAM [Concomitant]
     Active Substance: CITALOPRAM HYDROBROMIDE
     Indication: SEIZURE
     Dosage: 1 DF, DAILY (1 TABLET IN THE NIGHT)
     Route: 048
     Dates: start: 201808

REACTIONS (2)
  - Nausea [Not Recovered/Not Resolved]
  - Hospitalisation [Not Recovered/Not Resolved]

NARRATIVE: CASE EVENT DATE: 2019
